FAERS Safety Report 17808208 (Version 1)
Quarter: 2020Q2

REPORT INFORMATION
  Report Type: Report from Study
  Country: GB (occurrence: GB)
  Receive Date: 20200520
  Receipt Date: 20200520
  Transmission Date: 20200714
  Serious: Yes (Death)
  Sender: FDA-Public Use
  Company Number: GB-PFIZER INC-2020198042

PATIENT

DRUGS (6)
  1. METHOTREXATE SODIUM. [Suspect]
     Active Substance: METHOTREXATE SODIUM
     Indication: ACUTE LYMPHOCYTIC LEUKAEMIA RECURRENT
     Dosage: AGE-RELATED, CYCLIC (DAYS 1, 22 ), PHASE 3 (WEEKS 9-12)
     Route: 037
  2. CYTARABINE. [Suspect]
     Active Substance: CYTARABINE
     Indication: ACUTE LYMPHOCYTIC LEUKAEMIA RECURRENT
     Dosage: 3000 MG/M2, CYCLIC (EVEY 12 H , DAYS 1,2,8,9), PHASE 3 (WEEKS 9-12)
     Route: 042
  3. VINCRISTINE SULFATE. [Suspect]
     Active Substance: VINCRISTINE SULFATE
     Indication: ACUTE LYMPHOCYTIC LEUKAEMIA RECURRENT
     Dosage: 1.5 MG/M2, CYCLIC (DAY 3), PHASE 3 (WEEKS 9-12)
     Route: 042
  4. ERWINASE [ASPARAGINASE] [Suspect]
     Active Substance: ASPARAGINASE ERWINIA CHRYSANTHEMI
     Indication: ACUTE LYMPHOCYTIC LEUKAEMIA RECURRENT
     Dosage: CYCLIC (20000 U/M^2, DAYS 2,4,9,11,23), PHASE 3 (WEEKS 9-12)
     Route: 030
  5. CALCIUM FOLINATE [Suspect]
     Active Substance: LEUCOVORIN CALCIUM
     Indication: DRUG TOXICITY PROPHYLAXIS
     Dosage: UNK, CYCLIC (48 H FROM START OF INFUSION OF METHOTREXATE), PHASE 3 (WEEKS 9-12)
  6. DEXAMETHASONE. [Suspect]
     Active Substance: DEXAMETHASONE
     Indication: ACUTE LYMPHOCYTIC LEUKAEMIA RECURRENT
     Dosage: 6 MG/M2, CYCLIC (DAYS 1-5), PHASE 3 (WEEKS 9-12)
     Route: 048

REACTIONS (1)
  - Death [Fatal]
